FAERS Safety Report 6894876-6 (Version None)
Quarter: 2010Q3

REPORT INFORMATION
  Report Type: 
  Country: None (occurrence: None)
  Receive Date: 20100802
  Receipt Date: 20100721
  Transmission Date: 20110219
  Serious: Yes (Hospitalization)
  Sender: FDA-Public Use
  Company Number: CA-ROCHE-709363

PATIENT
  Sex: Female
  Weight: 70 kg

DRUGS (13)
  1. BEVACIZUMAB [Suspect]
     Indication: BREAST CANCER
     Dosage: LAST DOSE PRIOR TO SAE: 15 DEC 2009
     Route: 042
     Dates: start: 20081216
  2. DOXORUBICIN HCL [Suspect]
     Indication: BREAST CANCER
     Dosage: LAST DOSE PRIOR TO SAE: 29 JAN 2009.
     Route: 042
     Dates: start: 20081216
  3. CYCLOPHOSPHAMIDE [Suspect]
     Indication: BREAST CANCER
     Dosage: LAST DOSE PRIOR TO SAE: 29 JAN 2009
     Route: 042
     Dates: start: 20081216
  4. PACLITAXEL [Suspect]
     Indication: BREAST CANCER
     Dosage: DATE OF LAST DOSE PRIOR TO SAE: 24 MARCH 2009
     Route: 042
     Dates: start: 20090210
  5. REACTINE [Concomitant]
     Dates: start: 20040101
  6. SINGULAIR [Concomitant]
     Dates: start: 20040101
  7. SALBUTAMOL [Concomitant]
     Dosage: 1-2 PUFFS (PRN) INHALED
     Dates: start: 20080101
  8. RABEPRAZOLE SODIUM [Concomitant]
     Dates: start: 19950101
  9. TYLENOL E.S. [Concomitant]
     Dates: start: 20090201
  10. GRAVOL TAB [Concomitant]
     Dates: start: 20081230
  11. FLONASE [Concomitant]
     Dosage: TDD: 1-2 PUFFS (PRN) INHALED
     Dates: start: 20090304
  12. ALTACE [Concomitant]
     Dates: start: 20090922
  13. GAVISCON [Concomitant]
     Dates: start: 20090715

REACTIONS (2)
  - CARDIO-RESPIRATORY ARREST [None]
  - CARDIOGENIC SHOCK [None]
